FAERS Safety Report 18665685 (Version 1)
Quarter: 2020Q4

REPORT INFORMATION
  Report Type: Spontaneous
  Country: US (occurrence: US)
  Receive Date: 20201226
  Receipt Date: 20201226
  Transmission Date: 20210114
  Serious: No
  Sender: FDA-Public Use
  Company Number: US-JNJFOC-20201237405

PATIENT
  Sex: Female
  Weight: 86.26 kg

DRUGS (1)
  1. IMODIUM A-D [Suspect]
     Active Substance: LOPERAMIDE HYDROCHLORIDE
     Indication: IRRITABLE BOWEL SYNDROME
     Dosage: 8-12 TABLETS ONCE
     Route: 048
     Dates: start: 20201101, end: 20201215

REACTIONS (1)
  - Incorrect dose administered [Unknown]
